FAERS Safety Report 9527619 (Version 1)
Quarter: 2013Q1

REPORT INFORMATION
  Report Type: Spontaneous
  Country: US (occurrence: None)
  Receive Date: 20130314
  Receipt Date: 20130314
  Transmission Date: 20140127
  Serious: Yes (Other)
  Sender: FDA-Public Use
  Company Number: 1212USA003168

PATIENT
  Age: 58 Year
  Sex: Male

DRUGS (1)
  1. VICTRELIS [Suspect]
     Route: 048

REACTIONS (3)
  - Drug administration error [None]
  - Capsule physical issue [None]
  - No adverse event [None]
